FAERS Safety Report 10526045 (Version 2)
Quarter: 2014Q4

REPORT INFORMATION
  Report Type: Spontaneous
  Country: US (occurrence: US)
  Receive Date: 20141017
  Receipt Date: 20141017
  Transmission Date: 20150528
  Serious: Yes (Hospitalization, Other)
  Sender: FDA-Public Use
  Company Number: US-LUNDBECK-DKLU1093732

PATIENT
  Age: 4 Year
  Sex: Male
  Weight: 21.1 kg

DRUGS (15)
  1. SABRIL [Suspect]
     Active Substance: VIGABATRIN
     Indication: EPILEPSY
     Dates: start: 20130817
  2. DEPAKOTE [Concomitant]
     Active Substance: DIVALPROEX SODIUM
     Indication: SEIZURE
     Dates: start: 20130816, end: 20130823
  3. DEPAKOTE [Concomitant]
     Active Substance: DIVALPROEX SODIUM
     Dates: start: 20130823, end: 20130828
  4. AQUAPHOR [Concomitant]
     Active Substance: PETROLATUM
     Indication: DRY SKIN
     Dates: start: 20130819
  5. SABRIL [Suspect]
     Active Substance: VIGABATRIN
     Indication: EPILEPSY
  6. SABRIL [Suspect]
     Active Substance: VIGABATRIN
     Dates: start: 20130826, end: 20130828
  7. SABRIL [Suspect]
     Active Substance: VIGABATRIN
     Indication: COMPLEX PARTIAL SEIZURES
  8. SABRIL [Suspect]
     Active Substance: VIGABATRIN
     Dates: start: 20130829, end: 20130830
  9. SABRIL [Suspect]
     Active Substance: VIGABATRIN
     Dates: start: 20130831, end: 20130903
  10. MELATONIN [Concomitant]
     Active Substance: MELATONIN
     Indication: SLEEP DISORDER
     Dates: start: 20120810
  11. MIRALAX [Concomitant]
     Active Substance: POLYETHYLENE GLYCOL 3350
     Indication: CONSTIPATION
     Dates: start: 20130817
  12. MELATONIN [Concomitant]
     Active Substance: MELATONIN
     Dates: start: 20130823
  13. NEOSPORINE [Concomitant]
     Indication: SKIN INFECTION
     Dates: start: 20130818, end: 20130821
  14. SABRIL [Suspect]
     Active Substance: VIGABATRIN
     Dates: start: 20130826, end: 20130828
  15. NEOSPORINE [Concomitant]
     Dates: start: 20130822

REACTIONS (6)
  - Seizure [Recovered/Resolved]
  - Eating disorder [Recovering/Resolving]
  - Oral disorder [Not Recovered/Not Resolved]
  - Sedation [Recovered/Resolved]
  - Visual impairment [Unknown]
  - Drug intolerance [Unknown]

NARRATIVE: CASE EVENT DATE: 20130822
